FAERS Safety Report 4705304-0 (Version None)
Quarter: 2005Q3

REPORT INFORMATION
  Report Type: 
  Country: None (occurrence: None)
  Receive Date: 20050701
  Receipt Date: 20050623
  Transmission Date: 20060218
  Serious: Yes (Hospitalization)
  Sender: FDA-Public Use
  Company Number: JP-ROCHE-408611

PATIENT
  Age: 84 Year
  Sex: Male

DRUGS (6)
  1. PANALDINE [Suspect]
     Route: 048
     Dates: start: 20050329, end: 20050610
  2. ASPIRIN [Concomitant]
     Route: 048
  3. ARTIST [Concomitant]
     Route: 048
  4. ALDACTONE [Concomitant]
     Route: 048
  5. BLOPRESS [Concomitant]
     Route: 048
  6. SIGMART [Concomitant]
     Route: 048

REACTIONS (3)
  - ANOREXIA [None]
  - JAUNDICE [None]
  - MALAISE [None]
